FAERS Safety Report 9240449 (Version 2)
Quarter: 2013Q2

REPORT INFORMATION
  Report Type: Spontaneous
  Country: IT (occurrence: IT)
  Receive Date: 20130418
  Receipt Date: 20130604
  Transmission Date: 20140414
  Serious: Yes (Other)
  Sender: FDA-Public Use
  Company Number: IT-009507513-1304ITA006824

PATIENT
  Age: 87 Year
  Sex: Female

DRUGS (2)
  1. FOSAVANCE [Suspect]
     Indication: POLYMYALGIA RHEUMATICA
     Dosage: 1 DF, QW
     Route: 048
     Dates: start: 20090101
  2. MEDROL [Concomitant]

REACTIONS (2)
  - Abscess [Not Recovered/Not Resolved]
  - Osteonecrosis of jaw [Not Recovered/Not Resolved]
